FAERS Safety Report 9272591 (Version 4)
Quarter: 2019Q1

REPORT INFORMATION
  Report Type: Spontaneous
  Country: US (occurrence: US)
  Receive Date: 20130506
  Receipt Date: 20190327
  Transmission Date: 20190418
  Serious: No
  Sender: FDA-Public Use
  Company Number: US-PFIZER INC-2013136539

PATIENT
  Age: 80 Year
  Sex: Female
  Weight: 81.63 kg

DRUGS (4)
  1. ALPRAZOLAM. [Suspect]
     Active Substance: ALPRAZOLAM
     Dosage: UNK
  2. ZAROXOLYN [Suspect]
     Active Substance: METOLAZONE
     Dosage: UNK
  3. XANAX [Suspect]
     Active Substance: ALPRAZOLAM
     Dosage: UNK
  4. METOLAZONE. [Suspect]
     Active Substance: METOLAZONE
     Dosage: UNK

REACTIONS (1)
  - Drug hypersensitivity [Unknown]
